FAERS Safety Report 16415265 (Version 3)
Quarter: 2021Q1

REPORT INFORMATION
  Report Type: Report from Study
  Country: DE (occurrence: DE)
  Receive Date: 20190611
  Receipt Date: 20210316
  Transmission Date: 20210419
  Serious: Yes (Life-Threatening, Hospitalization, Other)
  Sender: FDA-Public Use
  Company Number: DE-JNJFOC-20190515790

PATIENT
  Age: 1 Day
  Sex: Male
  Weight: 1.97 kg

DRUGS (11)
  1. STELARA [Suspect]
     Active Substance: USTEKINUMAB
     Route: 064
     Dates: start: 20190220, end: 20190228
  2. VIGANTOLETTEN [Concomitant]
     Active Substance: CHOLECALCIFEROL
     Route: 064
  3. CALCIUM [Concomitant]
     Active Substance: CALCIUM
     Route: 064
  4. OMEPRAZOLE. [Concomitant]
     Active Substance: OMEPRAZOLE
     Indication: CROHN^S DISEASE
     Route: 064
     Dates: start: 20190401
  5. STELARA [Suspect]
     Active Substance: USTEKINUMAB
     Indication: PSORIASIS
     Route: 064
     Dates: start: 20171207
  6. STELARA [Suspect]
     Active Substance: USTEKINUMAB
     Route: 064
     Dates: start: 20181108
  7. STELARA [Suspect]
     Active Substance: USTEKINUMAB
     Route: 064
     Dates: start: 20190103
  8. PREDNISOLONE. [Suspect]
     Active Substance: PREDNISOLONE
     Indication: CROHN^S DISEASE
     Dosage: DEESCALATING TO 0?60 [MG/D (BIS 20) ]/ START WITH 60 MG/D, SLOW REDCUTION, 20 MG AT DELIVERY?ADDITIO
     Route: 064
     Dates: start: 20190329, end: 20190426
  9. STELARA [Suspect]
     Active Substance: USTEKINUMAB
     Indication: CROHN^S DISEASE
     Route: 064
     Dates: start: 20180917
  10. STELARA [Suspect]
     Active Substance: USTEKINUMAB
     Dosage: 0. ? 23.5. GESTATIONAL WEEK
     Route: 064
     Dates: start: 20180915, end: 20190228
  11. FERACCRU [Suspect]
     Active Substance: FERRIC MALTOL
     Indication: IRON DEFICIENCY ANAEMIA
     Route: 064
     Dates: start: 20190313

REACTIONS (14)
  - Neonatal seizure [Unknown]
  - Maternal exposure during breast feeding [Unknown]
  - Premature baby [Unknown]
  - Respiratory disorder neonatal [Unknown]
  - Foetal exposure during pregnancy [Recovered/Resolved]
  - Neonatal respiratory distress syndrome [Recovered/Resolved]
  - Hypotonia neonatal [Unknown]
  - Leukoencephalopathy [Not Recovered/Not Resolved]
  - Cryptorchism [Unknown]
  - Rotavirus infection [Recovered/Resolved with Sequelae]
  - Cerebral haemorrhage [Unknown]
  - Status epilepticus [Unknown]
  - Apnoea [Unknown]
  - Atrial septal defect [Unknown]

NARRATIVE: CASE EVENT DATE: 20181016
